FAERS Safety Report 4887603-5 (Version None)
Quarter: 2006Q1

REPORT INFORMATION
  Report Type: 
  Country: None (occurrence: None)
  Receive Date: 20060123
  Receipt Date: 20051111
  Transmission Date: 20060701
  Serious: Yes (Disabling)
  Sender: FDA-Public Use
  Company Number: 2005GB02209

PATIENT
  Age: 60 Year
  Sex: Female

DRUGS (3)
  1. ARIMIDEX [Interacting]
     Indication: BREAST CANCER
     Route: 048
  2. TAMOXIFEN CITRATE [Suspect]
     Indication: BREAST CANCER
     Route: 048
     Dates: start: 20040201, end: 20041001
  3. AMITRIPTYLINE HCL [Interacting]
     Indication: POLLAKIURIA
     Route: 065

REACTIONS (9)
  - AFFECT LABILITY [None]
  - ARTHRALGIA [None]
  - DRUG INTERACTION [None]
  - INSOMNIA [None]
  - PAIN IN EXTREMITY [None]
  - PELVIC DISCOMFORT [None]
  - PSYCHOMOTOR HYPERACTIVITY [None]
  - TREMOR [None]
  - VAGINAL HAEMORRHAGE [None]
